FAERS Safety Report 4810906-7 (Version None)
Quarter: 2005Q4

REPORT INFORMATION
  Report Type: 
  Country: None (occurrence: None)
  Receive Date: 20051025
  Receipt Date: 20051018
  Transmission Date: 20060501
  Serious: Yes (Life-Threatening, Other)
  Sender: FDA-Public Use
  Company Number: 2005PV003271

PATIENT
  Age: 51 Year
  Sex: Male

DRUGS (9)
  1. BYETTA [Suspect]
     Indication: DIABETES MELLITUS NON-INSULIN-DEPENDENT
     Dosage: 10 MCG; SC; 5 MCG; SC
     Route: 058
     Dates: start: 20050701, end: 20050101
  2. BYETTA [Suspect]
     Indication: DIABETES MELLITUS NON-INSULIN-DEPENDENT
     Dosage: 10 MCG; SC; 5 MCG; SC
     Route: 058
     Dates: start: 20050101, end: 20051016
  3. LANTUS [Concomitant]
  4. NOVOLOG [Concomitant]
  5. GLUCOPHAGE [Concomitant]
  6. ACTOS [Concomitant]
  7. NORVASC [Concomitant]
  8. PLAVIX [Concomitant]
  9. TRICOR [Concomitant]

REACTIONS (15)
  - BRONCHITIS [None]
  - CHEST DISCOMFORT [None]
  - DYSPNOEA [None]
  - FACE OEDEMA [None]
  - FOREIGN BODY TRAUMA [None]
  - GENERAL PHYSICAL HEALTH DETERIORATION [None]
  - HYPERSENSITIVITY [None]
  - LEUKOCYTOSIS [None]
  - OEDEMA PERIPHERAL [None]
  - PARAESTHESIA ORAL [None]
  - SINUS TACHYCARDIA [None]
  - TONGUE OEDEMA [None]
  - URTICARIA [None]
  - VOMITING [None]
  - WEIGHT DECREASED [None]
